FAERS Safety Report 15235178 (Version 3)
Quarter: 2019Q1

REPORT INFORMATION
  Report Type: Report from Study
  Country: JP (occurrence: JP)
  Receive Date: 20180803
  Receipt Date: 20190223
  Transmission Date: 20190417
  Serious: Yes (Other)
  Sender: FDA-Public Use
  Company Number: JP-AMGEN-JPNNI2018105930

PATIENT
  Age: 71 Year
  Sex: Male
  Weight: 63 kg

DRUGS (8)
  1. CARFILZOMIB [Suspect]
     Active Substance: CARFILZOMIB
     Dosage: 45MG/M2/DAY(13/12/2017,14/12/2017,20/12/2017,21/12/2017,27/12/2017,28/12/2017,17/01/2018,18/01/2018,
     Route: 041
  2. CARFILZOMIB [Suspect]
     Active Substance: CARFILZOMIB
     Dosage: 45MG/M2/DAY(14/02/2018,15/02/2018,21/02/2018,22/02/2018,28/02/2018,01/03/2018)
     Route: 041
     Dates: end: 20180301
  3. DEXAMETHASONE. [Concomitant]
     Active Substance: DEXAMETHASONE
     Dosage: 20 MG, UNK
     Route: 065
  4. DEXAMETHASONE. [Concomitant]
     Active Substance: DEXAMETHASONE
     Indication: PLASMA CELL MYELOMA
     Dosage: 20 MG(13/09/2017,14/09/2017,20/09/2017,21/09/2017,27/09/2017,28/09/2017,11/10/2017,12/10/207,18/10/2
     Route: 065
     Dates: start: 20170913
  5. CARFILZOMIB [Suspect]
     Active Substance: CARFILZOMIB
     Dosage: 45MG/M2/DAY(11/10/2017,12/10/207,18/10/2017,19/10/2017,25/10/2017,26/10/2017,15/11/2017,16/11/2017,2
     Route: 041
  6. DEXAMETHASONE. [Concomitant]
     Active Substance: DEXAMETHASONE
     Dosage: 20 MG, UNK
     Route: 065
     Dates: end: 20180308
  7. ACICLOVIR [Concomitant]
     Active Substance: ACYCLOVIR
     Indication: ANTIVIRAL PROPHYLAXIS
     Dosage: 200 MG, EVERYDAY
     Route: 048
  8. CARFILZOMIB [Suspect]
     Active Substance: CARFILZOMIB
     Indication: PLASMA CELL MYELOMA
     Dosage: 20MG/M2/DAY(13/09/2017,14/09/2017), 56 MG/M2/DAY(20/09/2017,21/09/2017), 45 MG/M2/DAY (27/09/2017,28
     Route: 041
     Dates: start: 20170913

REACTIONS (3)
  - Platelet count decreased [Recovered/Resolved]
  - Enterocolitis infectious [Recovered/Resolved]
  - Hypertension [Recovered/Resolved]

NARRATIVE: CASE EVENT DATE: 20170921
